FAERS Safety Report 16600073 (Version 1)
Quarter: 2019Q3

REPORT INFORMATION
  Report Type: Spontaneous
  Country: FR (occurrence: FR)
  Receive Date: 20190720
  Receipt Date: 20190720
  Transmission Date: 20191004
  Serious: Yes (Hospitalization, Other)
  Sender: FDA-Public Use
  Company Number: FR-AUROBINDO-AUR-APL-2019-040244

PATIENT

DRUGS (5)
  1. PIPERACILLIN AND TAZOBACTAM [Suspect]
     Active Substance: PIPERACILLIN SODIUM\TAZOBACTAM SODIUM
     Indication: INFECTION
     Dosage: UNK
     Route: 042
     Dates: start: 20190531, end: 20190605
  2. TIXTAR [Suspect]
     Active Substance: RIFAXIMIN
     Indication: HEPATIC ENCEPHALOPATHY PROPHYLAXIS
     Dosage: UNK
     Route: 048
     Dates: start: 20190530, end: 20190611
  3. RISORDAN [Suspect]
     Active Substance: ISOSORBIDE
     Indication: HYPERTENSION
     Dosage: UNK
     Route: 065
     Dates: start: 20190529, end: 20190607
  4. FUROSEMIDE. [Suspect]
     Active Substance: FUROSEMIDE
     Indication: HYPERTENSION
     Dosage: UNK
     Route: 065
     Dates: start: 20190529, end: 20190604
  5. PANTOPRAZOL ARROW 40 MG  POWDER FOR SOLUTION FOR INJECTION [Suspect]
     Active Substance: PANTOPRAZOLE SODIUM
     Indication: GASTROOESOPHAGEAL REFLUX DISEASE
     Dosage: UNK
     Route: 042
     Dates: start: 20190529, end: 20190605

REACTIONS (1)
  - Drug reaction with eosinophilia and systemic symptoms [Recovering/Resolving]

NARRATIVE: CASE EVENT DATE: 20190606
